FAERS Safety Report 7093988-4 (Version None)
Quarter: 2010Q4

REPORT INFORMATION
  Report Type: 
  Country: None (occurrence: None)
  Receive Date: 20101102
  Receipt Date: 20101020
  Transmission Date: 20110411
  Serious: Yes (Other)
  Sender: FDA-Public Use
  Company Number: JPI-P-010078

PATIENT
  Age: 52 Year
  Sex: Male
  Weight: 86.1834 kg

DRUGS (16)
  1. XYREM [Suspect]
     Indication: INSOMNIA
     Dosage: 4.5 GM (2.25 GM, 2 IN 1 D), ORAL; 9 GM (4.5 GM, 2 IN 1 D), ORAL
     Route: 048
     Dates: start: 20090513, end: 20091019
  2. XYREM [Suspect]
     Indication: INSOMNIA
     Dosage: 4.5 GM (2.25 GM, 2 IN 1 D), ORAL; 9 GM (4.5 GM, 2 IN 1 D), ORAL
     Route: 048
     Dates: start: 20091020, end: 20100101
  3. XYREM [Suspect]
     Indication: INSOMNIA
     Dosage: 4.5 GM (2.25 GM, 2 IN 1 D), ORAL; 9 GM (4.5 GM, 2 IN 1 D), ORAL
     Route: 048
     Dates: start: 20100101
  4. LAMOTRIGINE [Concomitant]
  5. TRAZODONE [Concomitant]
  6. OXCARBAZEPINE [Concomitant]
  7. GABAPENTIN [Concomitant]
  8. RABEPRAZOLE SODIUM [Concomitant]
  9. CARISOPRODOL [Concomitant]
  10. ZIPRASIDONE HCL [Concomitant]
  11. DULOXETINE HYDROCHLORIDE [Concomitant]
  12. ALPRAZOLAM [Concomitant]
  13. DIAZEPAM [Concomitant]
  14. ZOLPIDEM [Concomitant]
  15. PRIMIDONE [Concomitant]
  16. LACOSAMIDE [Concomitant]

REACTIONS (6)
  - ABDOMINAL PAIN UPPER [None]
  - ANXIETY [None]
  - ENURESIS [None]
  - FALL [None]
  - GRAND MAL CONVULSION [None]
  - TREMOR [None]
